FAERS Safety Report 7416142-2 (Version None)
Quarter: 2011Q2

REPORT INFORMATION
  Report Type: 
  Country: None (occurrence: None)
  Receive Date: 20110414
  Receipt Date: 20100928
  Transmission Date: 20111010
  Serious: Yes (Hospitalization, Other)
  Sender: FDA-Public Use
  Company Number: US-BAYER-201028554NA

PATIENT
  Age: 51 Year
  Sex: Female
  Weight: 85.261 kg

DRUGS (10)
  1. OCELLA [Suspect]
     Indication: MENORRHAGIA
     Dosage: UNK
     Dates: start: 20100125
  2. DEPAKOTE [Concomitant]
     Indication: BIPOLAR DISORDER
  3. OCELLA [Suspect]
     Indication: CONTRACEPTION
  4. YASMIN [Suspect]
     Indication: PRODUCT USED FOR UNKNOWN INDICATION
     Route: 048
     Dates: start: 20000101, end: 20100125
  5. DEPAKOTE [Concomitant]
     Indication: THYROID DISORDER
     Dosage: 1500 MG, UNK
     Route: 048
  6. LITHIUM [Concomitant]
     Indication: BIPOLAR DISORDER
  7. LAMICTAL [Concomitant]
  8. DEPAKOTE [Concomitant]
     Indication: OBSESSIVE-COMPULSIVE DISORDER
  9. SYNTHROID [Concomitant]
     Indication: HYPOTHYROIDISM
  10. SYNTHROID [Concomitant]
     Indication: THYROID DISORDER
     Dosage: 50 MCG/24HR, UNK
     Route: 048

REACTIONS (4)
  - BILIARY COLIC [None]
  - CHOLELITHIASIS [None]
  - DEEP VEIN THROMBOSIS [None]
  - GALLBLADDER INJURY [None]
